FAERS Safety Report 9699206 (Version 2)
Quarter: 2013Q4

REPORT INFORMATION
  Report Type: Spontaneous
  Country: US (occurrence: US)
  Receive Date: 20131120
  Receipt Date: 20131120
  Transmission Date: 20140711
  Serious: No
  Sender: FDA-Public Use
  Company Number: US-GILEAD-2008-0014925

PATIENT
  Age: 50 Year
  Sex: Female

DRUGS (9)
  1. LETAIRIS [Suspect]
     Indication: PULMONARY ARTERIAL HYPERTENSION
     Dates: start: 20071017
  2. ADVAIR [Concomitant]
  3. SPIRIVA [Concomitant]
  4. XOPHENEX [Concomitant]
  5. CLONIDINE [Concomitant]
  6. BUMEX [Concomitant]
  7. NORVASC [Concomitant]
  8. AMBIEN CR [Concomitant]
  9. ATIVAN [Concomitant]
     Dosage: TAKES PM

REACTIONS (3)
  - Pulmonary congestion [None]
  - Rash [None]
  - Flushing [None]
